FAERS Safety Report 7445508-X (Version None)
Quarter: 2011Q2

REPORT INFORMATION
  Report Type: 
  Country: None (occurrence: None)
  Receive Date: 20110420
  Receipt Date: 20110407
  Transmission Date: 20111010
  Serious: Yes (Hospitalization, Other)
  Sender: FDA-Public Use
  Company Number: 2011MA003553

PATIENT
  Age: 73 Year
  Sex: Male

DRUGS (1)
  1. FEVERALL [Suspect]
     Route: 054
     Dates: start: 20070601

REACTIONS (11)
  - PYREXIA [None]
  - PLEURAL EFFUSION [None]
  - FATIGUE [None]
  - ERYTHEMA [None]
  - CONJUNCTIVAL PALLOR [None]
  - LYMPH NODE PALPABLE [None]
  - LYMPHADENOPATHY MEDIASTINAL [None]
  - HEPATOMEGALY [None]
  - AGRANULOCYTOSIS [None]
  - DECREASED APPETITE [None]
  - CHILLS [None]
